FAERS Safety Report 13399829 (Version 1)
Quarter: 2017Q2

REPORT INFORMATION
  Report Type: Spontaneous
  Country: US (occurrence: US)
  Receive Date: 20170404
  Receipt Date: 20170404
  Transmission Date: 20170830
  Serious: Yes (Other)
  Sender: FDA-Public Use
  Company Number: None

PATIENT
  Age: 60 Year
  Sex: Male
  Weight: 105.7 kg

DRUGS (3)
  1. CHANTIX [Suspect]
     Active Substance: VARENICLINE TARTRATE
     Indication: SMOKING CESSATION THERAPY
     Dosage: QUANTITY:1 TABLET(S);OTHER FREQUENCY:AS DIRECTED,1-2/DY;?
     Route: 048
     Dates: start: 20170121, end: 20170224
  2. MULTI-VITAMIN [Concomitant]
     Active Substance: .ALPHA.-TOCOPHEROL ACETATE, DL-\ASCORBIC ACID\CYANOCOBALAMIN\FLUORIDE ION\FOLIC ACID\NIACIN\PYRIDOXINE\RIBOFLAVIN\THIAMINE\VITAMIN A\VITAMIN D
  3. FIBER PILLS [Concomitant]

REACTIONS (6)
  - Anxiety [None]
  - Irritability [None]
  - Jaw disorder [None]
  - Bruxism [None]
  - Dyskinesia [None]
  - Withdrawal syndrome [None]

NARRATIVE: CASE EVENT DATE: 20170224
